FAERS Safety Report 9513813 (Version 3)
Quarter: 2013Q3

REPORT INFORMATION
  Report Type: Report from Study
  Country: TR (occurrence: TR)
  Receive Date: 20130910
  Receipt Date: 20130917
  Transmission Date: 20140515
  Serious: Yes (Death, Hospitalization)
  Sender: FDA-Public Use
  Company Number: TR-ROCHE-1268802

PATIENT
  Age: 60 Year
  Sex: Male

DRUGS (12)
  1. RITUXIMAB [Suspect]
     Indication: DIFFUSE LARGE B-CELL LYMPHOMA
     Dosage: ON 25/APR/2013, PATIENT RECEIVED LAST DOSE OF RITUXIMAB PRIOR TO SAE
     Route: 042
     Dates: start: 20130425
  2. RHUPH20/RITUXIMAB [Suspect]
     Indication: DIFFUSE LARGE B-CELL LYMPHOMA
     Dosage: ON 14/AUG/2013, PATIENT RECEIVED LAST DOSE OF RHUPH20/RITUXIMAB
     Route: 058
     Dates: start: 20130521
  3. CYCLOPHOSPHAMIDE [Suspect]
     Indication: DIFFUSE LARGE B-CELL LYMPHOMA
     Dosage: ON 14/AUG/2013, PATIENT RECEIVED LAST DOSE OF CYCLOPHOSPHAMIDE PRIOR TO SAE
     Route: 065
     Dates: start: 20130425
  4. DOXORUBICIN [Suspect]
     Indication: DIFFUSE LARGE B-CELL LYMPHOMA
     Dosage: ON 14/AUG/2013, PATIENT RECEIVED LAST DOSE OF DOXORUBICIN PRIOR TO SAE
     Route: 065
     Dates: start: 20130425
  5. VINCRISTINE [Suspect]
     Indication: DIFFUSE LARGE B-CELL LYMPHOMA
     Dosage: ON 14/AUG/2013, PATIENT RECEIVED LAST DOSE OF VINCRISTINE PRIOR TO SAE
     Route: 065
     Dates: start: 20130425
  6. PREDNISONE [Suspect]
     Indication: DIFFUSE LARGE B-CELL LYMPHOMA
     Dosage: ON 19/AUG/2013, THE PATIENT RECEIVED LAST DOSE OF PREDNISONE
     Route: 065
     Dates: start: 20130425
  7. PHENIRAMINE [Concomitant]
     Route: 042
     Dates: start: 20130425
  8. GRANISETRON [Concomitant]
     Route: 042
     Dates: start: 20130425
  9. DEXAMETHASONE [Concomitant]
     Route: 042
     Dates: start: 20130425
  10. PARACETAMOL [Concomitant]
     Route: 048
     Dates: start: 20130425
  11. FILGRASTIM [Concomitant]
     Dosage: 48 MILLION UNITS PER METER
     Route: 042
     Dates: start: 20130717, end: 20130721
  12. FILGRASTIM [Concomitant]
     Dosage: 48 MIU/0.5ML
     Route: 065
     Dates: start: 20130823, end: 20130827

REACTIONS (2)
  - Pneumonia [Fatal]
  - Febrile neutropenia [Recovered/Resolved with Sequelae]
